FAERS Safety Report 20809845 (Version 2)
Quarter: 2022Q2

REPORT INFORMATION
  Report Type: Spontaneous
  Country: DE (occurrence: DE)
  Receive Date: 20220510
  Receipt Date: 20220524
  Transmission Date: 20220720
  Serious: Yes (Other)
  Sender: FDA-Public Use
  Company Number: DE-NOVARTISPH-NVSC2022DE107493

PATIENT
  Age: 76 Year
  Sex: Female
  Weight: 82 kg

DRUGS (17)
  1. CARBOPLATIN [Suspect]
     Active Substance: CARBOPLATIN
     Indication: Non-small cell lung cancer
     Dosage: 175 MG
     Route: 042
     Dates: start: 20211103
  2. CARBOPLATIN [Suspect]
     Active Substance: CARBOPLATIN
     Dosage: 263 MG
     Route: 042
     Dates: start: 20211103, end: 20211227
  3. CARBOPLATIN [Suspect]
     Active Substance: CARBOPLATIN
     Dosage: 158 MG
     Route: 042
     Dates: start: 20220124, end: 20220131
  4. PEMETREXED [Suspect]
     Active Substance: PEMETREXED
     Indication: Non-small cell lung cancer
     Dosage: 574 MG
     Route: 042
     Dates: start: 20211103
  5. PEMETREXED [Suspect]
     Active Substance: PEMETREXED
     Dosage: 453 MG
     Route: 042
     Dates: start: 20211103, end: 20211227
  6. PEMETREXED [Suspect]
     Active Substance: PEMETREXED
     Dosage: 272 MG
     Route: 042
     Dates: start: 20220124, end: 20220131
  7. BISOPROLOL [Concomitant]
     Active Substance: BISOPROLOL
     Indication: Product used for unknown indication
     Dosage: UNK
     Route: 048
  8. SODIUM BICARBONATE [Concomitant]
     Active Substance: SODIUM BICARBONATE
     Indication: Product used for unknown indication
     Dosage: 1 MG, QD
     Route: 065
     Dates: start: 20220411
  9. FILGRASTIM [Concomitant]
     Active Substance: FILGRASTIM
     Indication: Product used for unknown indication
     Dosage: 30000000 IU, QD
     Route: 065
     Dates: start: 20220421
  10. ELIQUIS [Concomitant]
     Active Substance: APIXABAN
     Indication: Product used for unknown indication
     Dosage: 10 MG, QD
     Route: 065
     Dates: start: 20220411
  11. ALLOPURINOL [Concomitant]
     Active Substance: ALLOPURINOL
     Indication: Product used for unknown indication
     Dosage: 100 MG, QD
     Route: 065
     Dates: start: 20220411
  12. GLANDOMED [Concomitant]
     Indication: Product used for unknown indication
     Dosage: UNK, PRN
     Route: 065
     Dates: start: 20220421
  13. METAMIZOLE [Concomitant]
     Active Substance: METAMIZOLE
     Indication: Product used for unknown indication
     Dosage: 2000 MG, QD (500 MG, QID)
     Route: 065
  14. LORATADINE [Concomitant]
     Active Substance: LORATADINE
     Indication: Product used for unknown indication
     Dosage: 10 MG, QD
     Route: 065
     Dates: start: 20220411
  15. PALEXIA [Concomitant]
     Active Substance: TAPENTADOL HYDROCHLORIDE
     Indication: Product used for unknown indication
     Dosage: 150 MG, QD (50 MG, TID)
     Route: 065
     Dates: start: 20220411
  16. NALOXONE HYDROCHLORIDE\TILIDINE HYDROCHLORIDE [Concomitant]
     Active Substance: NALOXONE HYDROCHLORIDE\TILIDINE HYDROCHLORIDE
     Indication: Product used for unknown indication
     Dosage: 50 MG, QD
     Route: 065
  17. VITAMIN B12 [Concomitant]
     Active Substance: CYANOCOBALAMIN
     Indication: Product used for unknown indication
     Dosage: 1000 UG
     Route: 065
     Dates: start: 20211103, end: 20220124

REACTIONS (2)
  - Pancytopenia [Recovered/Resolved]
  - Pancytopenia [Not Recovered/Not Resolved]

NARRATIVE: CASE EVENT DATE: 20220107
